FAERS Safety Report 15315447 (Version 1)
Quarter: 2018Q3

REPORT INFORMATION
  Report Type: Spontaneous
  Country: US (occurrence: US)
  Receive Date: 20180815
  Receipt Date: 20180815
  Transmission Date: 20181010
  Serious: Yes (Other)
  Sender: FDA-Public Use
  Company Number: None

PATIENT
  Age: 83 Year
  Sex: Female
  Weight: 52.65 kg

DRUGS (11)
  1. MULTIVITAMIN [Concomitant]
     Active Substance: VITAMINS
  2. IBRANCE [Suspect]
     Active Substance: PALBOCICLIB
     Indication: BREAST CANCER
     Route: 048
  3. KETOCONAZOLE 2% [Concomitant]
     Active Substance: KETOCONAZOLE
  4. MOMETASONE 0.1% [Concomitant]
  5. ATORVASTATIN [Concomitant]
     Active Substance: ATORVASTATIN
  6. ANASTROZOLE 1MG [Concomitant]
     Active Substance: ANASTROZOLE
  7. BETAMETHASONE VALERATE 0.1% [Concomitant]
     Active Substance: BETAMETHASONE VALERATE
  8. VITAMIN D 1000 [Concomitant]
  9. JANUMET XR 50/500 [Concomitant]
  10. DIOVAN [Concomitant]
     Active Substance: VALSARTAN
  11. FOSAMAX 70 [Concomitant]

REACTIONS (3)
  - Dermatitis atopic [None]
  - Condition aggravated [None]
  - Osteoporosis [None]
